FAERS Safety Report 19929702 (Version 4)
Quarter: 2021Q4

REPORT INFORMATION
  Report Type: Spontaneous
  Country: US (occurrence: US)
  Receive Date: 20211007
  Receipt Date: 20211022
  Transmission Date: 20220303
  Serious: Yes (Hospitalization, Other)
  Sender: FDA-Public Use
  Company Number: US-RECKITT BENCKISER HEALTHCARE INT LIMITED-RB-96111-2021

PATIENT
  Age: 63 Year
  Sex: Male
  Weight: 225 kg

DRUGS (2)
  1. CEPACOL EXTRA STRENGTH SORE THROAT CHERRY [Interacting]
     Active Substance: BENZOCAINE\DEXTROMETHORPHAN HYDROBROMIDE
     Indication: Throat irritation
     Dosage: 1 DOSAGE FORM, SINGLE
     Route: 048
     Dates: start: 20210930
  2. LISINOPRIL [Suspect]
     Active Substance: LISINOPRIL
     Indication: Product used for unknown indication
     Dosage: UNK
     Route: 065

REACTIONS (7)
  - Angioedema [Recovering/Resolving]
  - Swollen tongue [Recovered/Resolved]
  - Pharyngeal swelling [Recovered/Resolved]
  - Dysarthria [Recovering/Resolving]
  - Drug interaction [Not Recovered/Not Resolved]
  - Lip swelling [Recovered/Resolved]
  - Hypersensitivity [Recovering/Resolving]

NARRATIVE: CASE EVENT DATE: 20210930
